FAERS Safety Report 9399456 (Version 2)
Quarter: 2013Q3

REPORT INFORMATION
  Report Type: Spontaneous
  Country: BR (occurrence: BR)
  Receive Date: 20130715
  Receipt Date: 20130815
  Transmission Date: 20140515
  Serious: Yes (Hospitalization)
  Sender: FDA-Public Use
  Company Number: BR-BIOGENIDEC-2013BI053521

PATIENT
  Age: 20 Year
  Sex: Female

DRUGS (4)
  1. TYSABRI [Suspect]
     Indication: MULTIPLE SCLEROSIS
     Route: 042
     Dates: start: 20120315, end: 20121127
  2. YASMIN [Concomitant]
     Indication: CONTRACEPTION
     Dates: start: 2011
  3. COPAXONE [Concomitant]
  4. NATELE (VITAMIN COMPLEX) [Concomitant]

REACTIONS (1)
  - No adverse event [Recovered/Resolved]
